FAERS Safety Report 14258556 (Version 2)
Quarter: 2017Q4

REPORT INFORMATION
  Report Type: Spontaneous
  Country: US (occurrence: US)
  Receive Date: 20171207
  Receipt Date: 20171215
  Transmission Date: 20180321
  Serious: Yes (Other)
  Sender: FDA-Public Use
  Company Number: US-PFIZER INC-2017520446

PATIENT
  Sex: Female

DRUGS (9)
  1. LATUDA [Suspect]
     Active Substance: LURASIDONE HYDROCHLORIDE
     Dosage: 40 MG, 2X/DAY (40 MG TABLETS OF LATUDA TWICE AT NIGHT BEFORE SHE GO TO BED)
     Route: 048
  2. EFFEXOR [Suspect]
     Active Substance: VENLAFAXINE HYDROCHLORIDE
     Dosage: UNK
  3. WELLBUTRIN [Suspect]
     Active Substance: BUPROPION HYDROCHLORIDE
     Dosage: UNK
  4. VALIUM [Suspect]
     Active Substance: DIAZEPAM
     Dosage: UNK
  5. ATIVAN [Suspect]
     Active Substance: LORAZEPAM
     Dosage: UNK
  6. TYLENOL [Suspect]
     Active Substance: ACETAMINOPHEN
     Dosage: UNK
  7. FLEXERIL [Suspect]
     Active Substance: CYCLOBENZAPRINE HYDROCHLORIDE
     Dosage: UNK
  8. LATUDA [Suspect]
     Active Substance: LURASIDONE HYDROCHLORIDE
     Dosage: 20 MG, DAILY (CONTINUED WITH THIS DOSING REGIMEN FOR 2-3 NIGHTS)
  9. CELEXA [Suspect]
     Active Substance: CITALOPRAM HYDROBROMIDE
     Dosage: UNK

REACTIONS (8)
  - Headache [Not Recovered/Not Resolved]
  - Cerebrovascular accident [Unknown]
  - Migraine [Not Recovered/Not Resolved]
  - Vision blurred [Not Recovered/Not Resolved]
  - Psychotic disorder [Unknown]
  - Multiple sclerosis [Unknown]
  - Vomiting [Not Recovered/Not Resolved]
  - Crying [Not Recovered/Not Resolved]
